FAERS Safety Report 5154453-4 (Version None)
Quarter: 2006Q4

REPORT INFORMATION
  Report Type: 
  Country: None (occurrence: None)
  Receive Date: 20061114
  Receipt Date: 20061102
  Transmission Date: 20070319
  Serious: Yes (Other)
  Sender: FDA-Public Use
  Company Number: 2006130374

PATIENT
  Age: 59 Year
  Sex: Male

DRUGS (3)
  1. METHYLPREDNISOLONE ACETATE [Suspect]
     Indication: POLYMYALGIA RHEUMATICA
     Dosage: (160 MG, STAT), INTRAMUSCULAR
     Route: 030
     Dates: start: 20061019
  2. CITALOPRAM HYDROBROMIDE [Concomitant]
  3. ACETAMINOPHEN [Concomitant]

REACTIONS (4)
  - AGITATION [None]
  - BLOOD SODIUM DECREASED [None]
  - CONFUSIONAL STATE [None]
  - PSYCHOTIC DISORDER [None]
